FAERS Safety Report 24629185 (Version 4)
Quarter: 2025Q1

REPORT INFORMATION
  Report Type: Report from Study
  Country: CO (occurrence: CO)
  Receive Date: 20241118
  Receipt Date: 20250220
  Transmission Date: 20250409
  Serious: Yes (Hospitalization, Other)
  Sender: NOVO NORDISK
  Company Number: CO-NOVOPROD-1316904

PATIENT
  Age: 66 Year
  Sex: Male
  Weight: 78 kg

DRUGS (2)
  1. EMPAGLIFLOZIN\METFORMIN HYDROCHLORIDE [Concomitant]
     Active Substance: EMPAGLIFLOZIN\METFORMIN HYDROCHLORIDE
     Indication: Type 2 diabetes mellitus
     Route: 048
     Dates: start: 2014
  2. RYBELSUS [Suspect]
     Active Substance: SEMAGLUTIDE
     Indication: Type 2 diabetes mellitus
     Dosage: 14 MG, QD
     Route: 048
     Dates: start: 202404

REACTIONS (10)
  - Faeces discoloured [Recovered/Resolved]
  - Somnolence [Recovered/Resolved]
  - Internal haemorrhage [Recovered/Resolved]
  - Intra-abdominal vascular injury [Recovered/Resolved]
  - Haematemesis [Recovered/Resolved]
  - Asthenia [Recovered/Resolved]
  - Weight decreased [Recovered/Resolved]
  - Dizziness [Recovered/Resolved]
  - Eructation [Recovered/Resolved]
  - Off label use [Unknown]

NARRATIVE: CASE EVENT DATE: 20240401
